FAERS Safety Report 8796630 (Version 2)
Quarter: 2012Q4

REPORT INFORMATION
  Report Type: 
  Country: US (occurrence: US)
  Receive Date: 20120919
  Receipt Date: 20121126
  Transmission Date: 20130627
  Serious: Yes (Hospitalization, Other)
  Sender: FDA-Public Use
  Company Number: US-ASTRAZENECA-2012SE71592

PATIENT
  Age: 59 Year
  Sex: Female

DRUGS (6)
  1. SEROQUEL [Suspect]
     Indication: AFFECTIVE DISORDER
     Route: 048
  2. SEROQUEL [Suspect]
     Indication: BIPOLAR DISORDER
     Route: 048
  3. SEROQUEL [Suspect]
     Indication: AFFECTIVE DISORDER
     Route: 048
  4. SEROQUEL [Suspect]
     Indication: BIPOLAR DISORDER
     Route: 048
  5. NEXIUM [Suspect]
     Route: 048
  6. PRILOSEC OTC [Suspect]
     Route: 048

REACTIONS (5)
  - Lower limb fracture [Unknown]
  - Anaemia [Unknown]
  - Memory impairment [Unknown]
  - Off label use [Unknown]
  - Migraine [Unknown]
